FAERS Safety Report 15789495 (Version 3)
Quarter: 2019Q2

REPORT INFORMATION
  Report Type: Report from Study
  Country: CN (occurrence: CN)
  Receive Date: 20190104
  Receipt Date: 20190604
  Transmission Date: 20190711
  Serious: Yes (Hospitalization)
  Sender: FDA-Public Use
  Company Number: CN-EISAI MEDICAL RESEARCH-EC-2019-050009

PATIENT
  Age: 43 Year
  Sex: Male
  Weight: 24.06 kg

DRUGS (4)
  1. GLIQUIDONE [Concomitant]
     Active Substance: GLIQUIDONE
  2. EUTHYROX [Concomitant]
     Active Substance: LEVOTHYROXINE SODIUM
  3. METFORMIN HYDROCHLORIDE SUSTAINED RELEASE TABLETS [Concomitant]
  4. LENVATINIB [Suspect]
     Active Substance: LENVATINIB
     Indication: THYROID CANCER
     Route: 048
     Dates: start: 20180918, end: 20181227

REACTIONS (1)
  - Lung infection [Recovered/Resolved]

NARRATIVE: CASE EVENT DATE: 20181228
